FAERS Safety Report 13380004 (Version 7)
Quarter: 2018Q2

REPORT INFORMATION
  Report Type: Spontaneous
  Country: GB (occurrence: GB)
  Receive Date: 20170328
  Receipt Date: 20180503
  Transmission Date: 20180711
  Serious: Yes (Disabling, Congenital Anomaly, Other)
  Sender: FDA-Public Use
  Company Number: GB-ABBVIE-17P-167-1923266-00

PATIENT
  Age: 18 Year
  Sex: Male

DRUGS (1)
  1. VALPROATE [Suspect]
     Active Substance: VALPROIC ACID
     Indication: MATERNAL EXPOSURE TIMING UNSPECIFIED
     Route: 064

REACTIONS (19)
  - Congenital floppy infant [Unknown]
  - Dysmorphism [Unknown]
  - Fine motor skill dysfunction [Unknown]
  - Disinhibition [Unknown]
  - Foetal anticonvulsant syndrome [Unknown]
  - Myopia [Unknown]
  - Cognitive disorder [Unknown]
  - Autism spectrum disorder [Unknown]
  - Neurodevelopmental disorder [Unknown]
  - Poor feeding infant [Unknown]
  - Congenital cardiovascular anomaly [Unknown]
  - Foetal exposure during pregnancy [Unknown]
  - Visual impairment [Unknown]
  - Disability [Unknown]
  - Poor sucking reflex [Unknown]
  - Congenital hand malformation [Unknown]
  - Eating disorder [Unknown]
  - Speech disorder developmental [Unknown]
  - Hypoacusis [Unknown]
